FAERS Safety Report 9721841 (Version 2)
Quarter: 2014Q1

REPORT INFORMATION
  Report Type: Spontaneous
  Country: US (occurrence: US)
  Receive Date: 20131201
  Receipt Date: 20140228
  Transmission Date: 20141002
  Serious: No
  Sender: FDA-Public Use
  Company Number: US-ABBVIE-13P-163-1165123-00

PATIENT
  Age: 51 Year
  Sex: Male
  Weight: 122.58 kg

DRUGS (2)
  1. ANDROGEL [Suspect]
     Indication: BLOOD TESTOSTERONE DECREASED
     Dosage: ONE PUMP DAILY TO SHOULDERS AND UPPER ARMS
     Route: 061
     Dates: start: 201302, end: 201303
  2. ANDROGEL [Suspect]
     Dosage: ONE PUMP DAILY TO SHOULDERS AND UPPER ARMS
     Route: 061
     Dates: start: 201309, end: 20131020

REACTIONS (7)
  - Irritability [Recovering/Resolving]
  - Application site pain [Recovering/Resolving]
  - Application site erythema [Recovering/Resolving]
  - Skin exfoliation [Recovering/Resolving]
  - Pain in extremity [Recovering/Resolving]
  - Application site rash [Recovering/Resolving]
  - Abnormal behaviour [Unknown]
